FAERS Safety Report 23458826 (Version 1)
Quarter: 2024Q1

REPORT INFORMATION
  Report Type: Spontaneous
  Country: CH (occurrence: CH)
  Receive Date: 20240131
  Receipt Date: 20240131
  Transmission Date: 20240410
  Serious: Yes (Hospitalization, Other)
  Sender: FDA-Public Use
  Company Number: None

PATIENT
  Age: 31 Year
  Sex: Male

DRUGS (13)
  1. IBUPROFEN [Suspect]
     Active Substance: IBUPROFEN
     Indication: Product used for unknown indication
     Dosage: TIME INTERVAL: 1 TOTAL: IN TOTAL
     Route: 065
     Dates: start: 20231219, end: 20231219
  2. TRAMADOL [Suspect]
     Active Substance: TRAMADOL\TRAMADOL HYDROCHLORIDE
     Indication: Radiculopathy
     Route: 065
     Dates: end: 20231218
  3. TRAMADOL [Suspect]
     Active Substance: TRAMADOL\TRAMADOL HYDROCHLORIDE
     Indication: Radiculopathy
     Dosage: TIME INTERVAL: 1 TOTAL: IN TOTAL
     Route: 065
     Dates: start: 20231219, end: 20231219
  4. CLORAZEPATE DIPOTASSIUM [Suspect]
     Active Substance: CLORAZEPATE DIPOTASSIUM
     Indication: Radiculopathy
     Dosage: TIME INTERVAL: 1 TOTAL: IN TOTAL
     Route: 065
     Dates: start: 20231219, end: 20231219
  5. CLORAZEPATE DIPOTASSIUM [Suspect]
     Active Substance: CLORAZEPATE DIPOTASSIUM
     Indication: Radiculopathy
     Route: 065
     Dates: end: 20231218
  6. QUETIAPINE [Suspect]
     Active Substance: QUETIAPINE
     Indication: Radiculopathy
     Route: 065
     Dates: end: 20231217
  7. QUETIAPINE [Suspect]
     Active Substance: QUETIAPINE
     Indication: Radiculopathy
     Dosage: TIME INTERVAL: 1 TOTAL: IN TOTAL
     Route: 065
     Dates: start: 20231219, end: 20231219
  8. QUETIAPINE [Suspect]
     Active Substance: QUETIAPINE
     Indication: Radiculopathy
     Dosage: TIME INTERVAL: 1 TOTAL: IN TOTAL
     Route: 065
     Dates: start: 20231218, end: 20231218
  9. DAFALGAN [Suspect]
     Active Substance: ACETAMINOPHEN
     Indication: Radiculopathy
     Dosage: TIME INTERVAL: TOTAL: IN TOTAL
     Route: 065
     Dates: start: 20231218, end: 20231218
  10. DAFALGAN [Suspect]
     Active Substance: ACETAMINOPHEN
     Indication: Radiculopathy
     Dosage: TIME INTERVAL: TOTAL: IN TOTAL
     Route: 065
     Dates: start: 20231219, end: 20231219
  11. DAFALGAN [Suspect]
     Active Substance: ACETAMINOPHEN
     Indication: Radiculopathy
     Route: 065
     Dates: start: 20231217
  12. FYCOMPA [Suspect]
     Active Substance: PERAMPANEL
     Indication: Radiculopathy
     Dosage: TIME INTERVAL: TOTAL
     Route: 065
     Dates: start: 20231218, end: 20231218
  13. FYCOMPA [Suspect]
     Active Substance: PERAMPANEL
     Indication: Radiculopathy
     Route: 065
     Dates: start: 20231217

REACTIONS (7)
  - Head injury [Recovered/Resolved]
  - Intentional overdose [Recovered/Resolved]
  - Gait disturbance [Recovered/Resolved]
  - Intentional overdose [Recovered/Resolved]
  - Fall [Recovered/Resolved]
  - Altered state of consciousness [Recovered/Resolved]
  - Dizziness [Recovered/Resolved]

NARRATIVE: CASE EVENT DATE: 20231218
